FAERS Safety Report 9358129 (Version 1)
Quarter: 2013Q2

REPORT INFORMATION
  Report Type: Report from Study
  Country: GB (occurrence: GB)
  Receive Date: 20130620
  Receipt Date: 20130620
  Transmission Date: 20140414
  Serious: Yes (Death)
  Sender: FDA-Public Use
  Company Number: GB-ABBOTT-13P-167-1107575-00

PATIENT
  Sex: Female
  Weight: 74 kg

DRUGS (1)
  1. HUMIRA [Suspect]
     Indication: RHEUMATOID ARTHRITIS
     Route: 058
     Dates: start: 20030415, end: 20031015

REACTIONS (4)
  - Left ventricular failure [Fatal]
  - Atrial fibrillation [Fatal]
  - Rheumatoid arthritis [Fatal]
  - B-cell lymphoma [Fatal]
